FAERS Safety Report 9157246 (Version 1)
Quarter: 2013Q1

REPORT INFORMATION
  Report Type: Spontaneous
  Country: US (occurrence: None)
  Receive Date: 20130308
  Receipt Date: 20130308
  Transmission Date: 20140127
  Serious: Yes (Other)
  Sender: FDA-Public Use
  Company Number: None

PATIENT
  Sex: Male
  Weight: 103.42 kg

DRUGS (1)
  1. NICODERM [Suspect]
     Dosage: 21 MG  1X 24 HRS DAILY TO SKIN

REACTIONS (1)
  - Application site rash [None]
